FAERS Safety Report 6678835-4 (Version None)
Quarter: 2010Q2

REPORT INFORMATION
  Report Type: 
  Country: None (occurrence: None)
  Receive Date: 20100406
  Receipt Date: 20090930
  Transmission Date: 20101027
  Serious: Yes (Hospitalization)
  Sender: FDA-Public Use
  Company Number: DSA_41773_2009

PATIENT
  Sex: Female

DRUGS (1)
  1. CARDIZEM [Suspect]
     Indication: DRUG USE FOR UNKNOWN INDICATION
     Dosage: (120 MG)

REACTIONS (1)
  - HEART RATE IRREGULAR [None]
